FAERS Safety Report 24578905 (Version 2)
Quarter: 2024Q4

REPORT INFORMATION
  Report Type: Spontaneous
  Country: NO (occurrence: NO)
  Receive Date: 20241105
  Receipt Date: 20241129
  Transmission Date: 20250115
  Serious: Yes (Other)
  Sender: TAKEDA
  Company Number: NO-TAKEDA-2024TUS110176

PATIENT

DRUGS (2)
  1. LISDEXAMFETAMINE DIMESYLATE [Suspect]
     Active Substance: LISDEXAMFETAMINE DIMESYLATE
     Indication: Attention deficit hyperactivity disorder
     Dosage: UNK
  2. Attentin [Concomitant]
     Dosage: UNK

REACTIONS (10)
  - Injury [Recovering/Resolving]
  - Somnambulism [Recovering/Resolving]
  - Fall [Recovering/Resolving]
  - Internal haemorrhage [Recovering/Resolving]
  - Gambling disorder [Recovering/Resolving]
  - Fear [Recovering/Resolving]
  - Schizophrenia [Recovering/Resolving]
  - Mental disorder [Recovering/Resolving]
  - General physical health deterioration [Recovering/Resolving]
  - Sleep terror [Recovering/Resolving]

NARRATIVE: CASE EVENT DATE: 20210501
